FAERS Safety Report 5750129-0 (Version None)
Quarter: 2008Q2

REPORT INFORMATION
  Report Type: 
  Country: None (occurrence: None)
  Receive Date: 20080527
  Receipt Date: 20080515
  Transmission Date: 20081010
  Serious: Yes (Other)
  Sender: FDA-Public Use
  Company Number: US-PFIZER INC-2008026332

PATIENT
  Sex: Female
  Weight: 63.5 kg

DRUGS (6)
  1. LYRICA [Suspect]
     Indication: FIBROMYALGIA
  2. NORVASC [Concomitant]
     Indication: BLOOD PRESSURE
  3. PAXIL [Concomitant]
     Indication: DEPRESSION
  4. PRILOSEC [Concomitant]
     Indication: GASTRIC DISORDER
  5. PREMPRO [Concomitant]
  6. DARVOCET [Concomitant]

REACTIONS (4)
  - COGNITIVE DISORDER [None]
  - DIZZINESS [None]
  - FEELING ABNORMAL [None]
  - HUNGER [None]
